FAERS Safety Report 5135734-7 (Version None)
Quarter: 2006Q4

REPORT INFORMATION
  Report Type: 
  Country: None (occurrence: None)
  Receive Date: 20061020
  Receipt Date: 20060803
  Transmission Date: 20070319
  Serious: Yes (Hospitalization, Other)
  Sender: FDA-Public Use
  Company Number: 2006096996

PATIENT
  Sex: Female
  Weight: 113.3993 kg

DRUGS (2)
  1. CELEBREX [Suspect]
  2. BEXTRA [Suspect]

REACTIONS (4)
  - ARTHRITIS [None]
  - CARDIAC DISORDER [None]
  - DEPRESSION [None]
  - DIABETES MELLITUS [None]
